FAERS Safety Report 25986557 (Version 3)
Quarter: 2025Q4

REPORT INFORMATION
  Report Type: Other
  Country: US (occurrence: US)
  Receive Date: 20251031
  Receipt Date: 20251203
  Transmission Date: 20260117
  Serious: No
  Sender: TRAVERE THERAPEUTICS
  Company Number: US-TRAVERE-2025TVT01892

PATIENT
  Age: 85 Year
  Sex: Female

DRUGS (3)
  1. FILSPARI [Suspect]
     Active Substance: SPARSENTAN
     Indication: IgA nephropathy
     Route: 048
  2. FILSPARI [Suspect]
     Active Substance: SPARSENTAN
     Route: 048
  3. JARDIANCE [Suspect]
     Active Substance: EMPAGLIFLOZIN
     Indication: Product used for unknown indication

REACTIONS (10)
  - Nasopharyngitis [Unknown]
  - Hypersensitivity [Unknown]
  - Insomnia [Unknown]
  - Cough [None]
  - Dysuria [Recovered/Resolved]
  - Blister [Recovered/Resolved]
  - Headache [Recovered/Resolved]
  - Renal pain [Unknown]
  - Off label use [Unknown]
  - Product dose omission issue [Unknown]

NARRATIVE: CASE EVENT DATE: 20251001
